FAERS Safety Report 26185241 (Version 1)
Quarter: 2025Q4

REPORT INFORMATION
  Report Type: Spontaneous
  Country: US (occurrence: US)
  Receive Date: 20251222
  Receipt Date: 20251222
  Transmission Date: 20260117
  Serious: No
  Sender: ROCHE
  Company Number: US-ROCHE-10000458150

PATIENT
  Age: 63 Year
  Sex: Male
  Weight: 90.71 kg

DRUGS (24)
  1. ACTEMRA [Suspect]
     Active Substance: TOCILIZUMAB
     Indication: Rheumatoid arthritis
     Dosage: INJECT THE CONTENTS UNDER THE SKIN, EVERY 14 DAYS, 6 REFILLS
     Route: 058
     Dates: start: 202511
  2. XOFLUZA [Suspect]
     Active Substance: BALOXAVIR MARBOXIL
     Indication: Product used for unknown indication
     Route: 048
     Dates: start: 20251128, end: 20251128
  3. AMOXICILLIN [Concomitant]
     Active Substance: AMOXICILLIN
     Dosage: 875MG TABLETS
     Route: 048
  4. AMOXICILLIN [Concomitant]
     Active Substance: AMOXICILLIN
     Dosage: 500MG TABLETS
     Route: 048
  5. CIPRO [Concomitant]
     Active Substance: CIPROFLOXACIN HYDROCHLORIDE
     Dosage: 56 TABLETS FOR 28 DAYS
     Route: 048
  6. DICLOFENAC SODIUM [Concomitant]
     Active Substance: DICLOFENAC SODIUM
     Dosage: PATIENT HAD A SCRIPT FILLED ON 02-OCT-2025 FOR A 30 DAY SUPPLY AND IT HASN^T BEEN REFILLED?SINCE
     Route: 048
  7. FOLIC ACID [Concomitant]
     Active Substance: FOLIC ACID
     Dosage: SCRIPT FILLED ON 08-DEC-2025, 30 TABLETS FOR 30 DAY SUPPLY
     Route: 048
  8. GABAPENTIN [Concomitant]
     Active Substance: GABAPENTIN
     Dosage: WHICH WAS LAST FILLED IN -JUN-2025, 60 TABLETS FOR 30 DAYS
     Route: 048
  9. KETOROLAC [Concomitant]
     Active Substance: KETOROLAC TROMETHAMINE
     Dosage: WHICH WAS LAST FILLED IN -SEP-2025, FOR A 5 DAY SUPPLY
     Route: 048
  10. METHOTREXATE [Concomitant]
     Active Substance: METHOTREXATE
     Dosage: WHICH WAS LAST FILLED IN -SEP-2025, 40 TABLETS FOR 28 DAY SUPPLY
     Route: 048
  11. METHYLPHENIDATE [Concomitant]
     Active Substance: METHYLPHENIDATE
     Dosage: WHICH WAS LAST FILLED -SEP-2025, 60 TABLETS FOR 30 DAY SUPPLY
     Route: 048
  12. METHYLPREDNISOLONE [Concomitant]
     Active Substance: METHYLPREDNISOLONE
     Dosage: FILLED ONE TIME, ON 01-OCT-2025
     Route: 048
  13. NP THYROID [Concomitant]
     Active Substance: LEVOTHYROXINE\LIOTHYRONINE
     Dosage: SCRIPT FILLED FOR 30MG ON -SEP-2025, 30 TABLET OF 120MG FILLED ON 17-NOV-2025 FOR 30 DAY?SUPPLY, AND 15MG FILLED ON 02-DEC-2025
     Route: 048
  14. NP THYROID [Concomitant]
     Active Substance: LEVOTHYROXINE\LIOTHYRONINE
     Dosage: 120MG TABLET
     Route: 048
  15. NP THYROID [Concomitant]
     Active Substance: LEVOTHYROXINE\LIOTHYRONINE
     Dosage: 15MG TABLET
     Route: 048
  16. PANTOPRAZOLE [Concomitant]
     Active Substance: PANTOPRAZOLE
     Dosage: LAST FILLED ON 17-NOV-2025, 30 TABLETS FOR 30 DAYS
     Route: 048
  17. PREDNISONE [Concomitant]
     Active Substance: PREDNISONE
     Dosage: LAST FILLED ON 07-NOV-2025, 47 TABLETS FOR A 30 DAY SUPPLY, WHICH WAS PROBABLY A TAPER
     Route: 048
  18. PROMETHAZINE DM [Concomitant]
     Active Substance: DEXTROMETHORPHAN HYDROBROMIDE\PROMETHAZINE HYDROCHLORIDE
     Dosage: 6.25MG/15MG PER 5ML, WHICH WAS LAST FILLED ON 28-NOV-2025, 200ML FOR A 7 DAY SUPPLY
  19. ROSUVASTATIN CALCIUM [Concomitant]
     Active Substance: ROSUVASTATIN CALCIUM
     Dosage: LAST FILLED ON 19-SEP-2025, FOR A 28 DAY SUPPLY
  20. SULFASALAZINE [Concomitant]
     Active Substance: SULFASALAZINE
     Dosage: LAST FILLED ON -AUG-2025, FOR A 30 DAY SUPPLY
     Route: 048
  21. TAMSULOSIN [Concomitant]
     Active Substance: TAMSULOSIN
     Dosage: FILLED ON 17-NOV-2025, 30 TABLETS FOR 30 DAY SUPPLY
     Route: 048
  22. TEMAZEPAM [Concomitant]
     Active Substance: TEMAZEPAM
     Dosage: LAST FILLED ON 28-OCT-2025, 30 TABLETS FOR 30 DAY SUPPLY
     Route: 048
  23. TRAMADOL [Concomitant]
     Active Substance: TRAMADOL
     Dosage: LAST FILLED ON 08-SEP-2025, 20 TABLETS FOR 5 DAY SUPPLY
     Route: 048
  24. XTANDI [Concomitant]
     Active Substance: ENZALUTAMIDE
     Dosage: LAST FILLED 18-APR-2025, 120 TABLETS FOR 30 DAY SUPPLY
     Route: 048

REACTIONS (3)
  - Product dose omission issue [Unknown]
  - Device defective [Unknown]
  - No adverse event [Unknown]

NARRATIVE: CASE EVENT DATE: 20251209
